FAERS Safety Report 23788459 (Version 1)
Quarter: 2024Q2

REPORT INFORMATION
  Report Type: Report from Study
  Country: US (occurrence: US)
  Receive Date: 20240426
  Receipt Date: 20240426
  Transmission Date: 20240716
  Serious: Yes (Hospitalization)
  Sender: FDA-Public Use
  Company Number: US-ABBVIE-5734314

PATIENT
  Age: 57 Year
  Sex: Female

DRUGS (6)
  1. RINVOQ [Suspect]
     Active Substance: UPADACITINIB
     Indication: Product used for unknown indication
     Route: 048
     Dates: end: 202404
  2. DAYPRO [Concomitant]
     Active Substance: OXAPROZIN
     Indication: Product used for unknown indication
     Dosage: FORM STRENGTH: 600 MILLIGRAM
     Route: 048
  3. CEVIMELINE HYDROCHLORIDE [Concomitant]
     Active Substance: CEVIMELINE HYDROCHLORIDE
     Indication: Product used for unknown indication
     Dosage: FORM STRENGTH: 30 MILLIGRAM
     Route: 048
  4. VYVANSE [Concomitant]
     Active Substance: LISDEXAMFETAMINE DIMESYLATE
     Indication: Product used for unknown indication
     Dosage: FORM STRENGTH: 50 MILLIGRAM
     Route: 048
  5. CYMBALTA [Concomitant]
     Active Substance: DULOXETINE HYDROCHLORIDE
     Indication: Product used for unknown indication
     Dosage: FORM STRENGTH: 60 MILLIGRAM
     Route: 048
  6. LATUDA [Concomitant]
     Active Substance: LURASIDONE HYDROCHLORIDE
     Indication: Product used for unknown indication
     Dosage: FORM STRENGTH: 60 MILLIGRAM
     Route: 048

REACTIONS (1)
  - General symptom [Recovering/Resolving]

NARRATIVE: CASE EVENT DATE: 20240416
